FAERS Safety Report 23974252 (Version 2)
Quarter: 2024Q3

REPORT INFORMATION
  Report Type: Spontaneous
  Country: BR (occurrence: BR)
  Receive Date: 20240614
  Receipt Date: 20240718
  Transmission Date: 20241017
  Serious: Yes (Hospitalization, Other)
  Sender: CELLTRION
  Company Number: BR-CELLTRION INC.-2024BR013741

PATIENT

DRUGS (5)
  1. INFLIXIMAB [Suspect]
     Active Substance: INFLIXIMAB
     Indication: Crohn^s disease
     Dosage: 4 AMPOULES EVERY 15 DAYS
     Route: 042
     Dates: start: 20220914
  2. INFLIXIMAB [Suspect]
     Active Substance: INFLIXIMAB
     Dosage: HE TOOK THE FIRST DOSE OF REMSIMA AGAIN
     Route: 042
     Dates: start: 20240526, end: 20240601
  3. PREDNISONE [Concomitant]
     Active Substance: PREDNISONE
     Indication: Crohn^s disease
     Dosage: 40 MG, QD (1 PILL A DAY); START DATE: 7 MONTHS AGO, STOP DATE: WEANING OFF
     Route: 048
  4. PREDNISONE [Concomitant]
     Active Substance: PREDNISONE
     Dosage: 30 MG, QD (1 PILL A DAY)
     Route: 048
     Dates: start: 202405
  5. PREDNISONE [Concomitant]
     Active Substance: PREDNISONE
     Dosage: 20 MG, QD (1 PILL A DAY)
     Route: 048
     Dates: start: 20240519, end: 20240525

REACTIONS (7)
  - Crohn^s disease [Not Recovered/Not Resolved]
  - Hospitalisation [Unknown]
  - Bacterial infection [Not Recovered/Not Resolved]
  - Anal fistula [Not Recovered/Not Resolved]
  - Alopecia [Not Recovered/Not Resolved]
  - Product availability issue [Unknown]
  - Intentional product use issue [Not Recovered/Not Resolved]

NARRATIVE: CASE EVENT DATE: 20231101
